FAERS Safety Report 24115771 (Version 1)
Quarter: 2024Q3

REPORT INFORMATION
  Report Type: Spontaneous
  Country: US (occurrence: US)
  Receive Date: 20240721
  Receipt Date: 20240721
  Transmission Date: 20241017
  Serious: Yes (Other)
  Sender: BAYER
  Company Number: US-BAYER-2024A098467

PATIENT
  Age: 45 Year
  Sex: Female
  Weight: 45.5 kg

DRUGS (4)
  1. ADEMPAS [Suspect]
     Active Substance: RIOCIGUAT
     Indication: Product used for unknown indication
  2. SELEXIPAG [Suspect]
     Active Substance: SELEXIPAG
     Indication: Pulmonary hypertension
     Dosage: 1400 ?G, BID
     Route: 048
  3. WARFARIN [Concomitant]
     Active Substance: WARFARIN
  4. AMBRISENTAN [Concomitant]
     Active Substance: AMBRISENTAN

REACTIONS (8)
  - Weight decreased [None]
  - Oxygen saturation decreased [None]
  - Headache [None]
  - Nausea [None]
  - Vomiting [None]
  - Vasodilatation [None]
  - Swelling [None]
  - Constipation [None]
